FAERS Safety Report 14312613 (Version 1)
Quarter: 2017Q4

REPORT INFORMATION
  Report Type: Spontaneous
  Country: US (occurrence: US)
  Receive Date: 20171220
  Receipt Date: 20171220
  Transmission Date: 20180321
  Serious: Yes (Hospitalization)
  Sender: FDA-Public Use
  Company Number: None

PATIENT
  Age: 67 Year
  Sex: Male
  Weight: 58 kg

DRUGS (1)
  1. WARFARIN [Suspect]
     Active Substance: WARFARIN
     Dates: start: 20170818, end: 20171015

REACTIONS (6)
  - Vascular pseudoaneurysm [None]
  - Haemorrhage [None]
  - Retroperitoneal haematoma [None]
  - Abdominal pain [None]
  - Aortic aneurysm rupture [None]
  - Abscess [None]

NARRATIVE: CASE EVENT DATE: 20171015
